FAERS Safety Report 19595944 (Version 15)
Quarter: 2024Q4

REPORT INFORMATION
  Report Type: Report from Study
  Country: US (occurrence: US)
  Receive Date: 20210722
  Receipt Date: 20241008
  Transmission Date: 20250115
  Serious: Yes (Hospitalization, Other)
  Sender: TAKEDA
  Company Number: US-TAKEDA-US202027496

PATIENT
  Age: 65 Year
  Sex: Female

DRUGS (5)
  1. HUMAN IMMUNOGLOBULIN G [Suspect]
     Active Substance: HUMAN IMMUNOGLOBULIN G
     Indication: Immunodeficiency common variable
     Dosage: 100 GRAM, MONTHLY
     Route: 042
  2. HUMAN IMMUNOGLOBULIN G [Suspect]
     Active Substance: HUMAN IMMUNOGLOBULIN G
     Indication: Primary immunodeficiency syndrome
     Dosage: 110 GRAM, Q4WEEKS
     Route: 042
  3. HUMAN IMMUNOGLOBULIN G [Suspect]
     Active Substance: HUMAN IMMUNOGLOBULIN G
     Dosage: 110 GRAM, MONTHLY
     Route: 042
  4. HUMAN IMMUNOGLOBULIN G [Suspect]
     Active Substance: HUMAN IMMUNOGLOBULIN G
     Dosage: UNK
     Route: 042
  5. PEPCID [Concomitant]
     Active Substance: FAMOTIDINE
     Indication: Premedication
     Dosage: UNK
     Route: 042

REACTIONS (39)
  - Pancreatic neoplasm [Unknown]
  - Atrial fibrillation [Recovered/Resolved]
  - Sluggishness [Unknown]
  - Poor quality sleep [Unknown]
  - Quality of life decreased [Unknown]
  - Incorrect drug administration rate [Unknown]
  - Inappropriate schedule of product administration [Unknown]
  - Tendonitis [Unknown]
  - Immunoglobulins decreased [Unknown]
  - Gait disturbance [Unknown]
  - Dehydration [Unknown]
  - Eructation [Unknown]
  - Blood iron decreased [Unknown]
  - Peripheral swelling [Recovered/Resolved]
  - Transferrin saturation decreased [Unknown]
  - Limb injury [Recovered/Resolved]
  - Gait disturbance [Recovered/Resolved]
  - Abdominal discomfort [Unknown]
  - Pain [Unknown]
  - Asthenia [Unknown]
  - Dyspepsia [Unknown]
  - Anxiety [Unknown]
  - Erythema [Recovered/Resolved]
  - Arthralgia [Unknown]
  - Malaise [Unknown]
  - Chest discomfort [Unknown]
  - Pain in extremity [Unknown]
  - Fatigue [Not Recovered/Not Resolved]
  - Meniscus injury [Not Recovered/Not Resolved]
  - Stress [Unknown]
  - Gastrointestinal disorder [Unknown]
  - COVID-19 [Unknown]
  - Food poisoning [Recovered/Resolved]
  - Iron deficiency [Unknown]
  - Haematoma [Recovered/Resolved]
  - Injection site pain [Unknown]
  - Insomnia [Not Recovered/Not Resolved]
  - Chills [Not Recovered/Not Resolved]
  - Headache [Not Recovered/Not Resolved]

NARRATIVE: CASE EVENT DATE: 20210205
